FAERS Safety Report 18072806 (Version 1)
Quarter: 2020Q3

REPORT INFORMATION
  Report Type: Spontaneous
  Country: US (occurrence: US)
  Receive Date: 20200727
  Receipt Date: 20200727
  Transmission Date: 20201103
  Serious: No
  Sender: FDA-Public Use
  Company Number: US-SA-2020SA193605

PATIENT

DRUGS (2)
  1. PLAQUENIL [Concomitant]
     Active Substance: HYDROXYCHLOROQUINE SULFATE
  2. KEVZARA [Suspect]
     Active Substance: SARILUMAB
     Indication: RHEUMATOID ARTHRITIS
     Dosage: 1.14 ML, QOW
     Route: 058
     Dates: start: 2018

REACTIONS (3)
  - Genital erythema [Unknown]
  - Dry skin [Unknown]
  - Swelling [Unknown]

NARRATIVE: CASE EVENT DATE: 2020
